FAERS Safety Report 7732043-4 (Version None)
Quarter: 2011Q3

REPORT INFORMATION
  Report Type: 
  Country: None (occurrence: None)
  Receive Date: 20110906
  Receipt Date: 20110826
  Transmission Date: 20111222
  Serious: Yes (Hospitalization, Other)
  Sender: FDA-Public Use
  Company Number: US-BAYER-2011-006775

PATIENT
  Age: 24 Year
  Sex: Female
  Weight: 86.168 kg

DRUGS (2)
  1. YAZ [Suspect]
     Indication: MENSTRUATION IRREGULAR
     Dosage: 3 PILLS A DAY
     Route: 048
     Dates: start: 20080801, end: 20081101
  2. CLOMID [Concomitant]

REACTIONS (10)
  - GENITAL HAEMORRHAGE [None]
  - MENSTRUAL DISORDER [None]
  - FEAR [None]
  - EMOTIONAL DISTRESS [None]
  - ANXIETY [None]
  - INJURY [None]
  - PSYCHIATRIC SYMPTOM [None]
  - MENOMETRORRHAGIA [None]
  - ANAEMIA [None]
  - ABDOMINAL PAIN [None]
